FAERS Safety Report 13999025 (Version 1)
Quarter: 2017Q3

REPORT INFORMATION
  Report Type: Spontaneous
  Country: US (occurrence: US)
  Receive Date: 20170922
  Receipt Date: 20170922
  Transmission Date: 20171128
  Serious: Yes (Other)
  Sender: FDA-Public Use
  Company Number: None

PATIENT
  Age: 35 Year
  Sex: Female
  Weight: 58.5 kg

DRUGS (1)
  1. BUPRENORPHINE/NALOXONE [Suspect]
     Active Substance: BUPRENORPHINE\NALOXONE
     Indication: DRUG USE DISORDER
     Route: 060
     Dates: start: 20170720, end: 20170921

REACTIONS (6)
  - Photophobia [None]
  - Impaired work ability [None]
  - Nausea [None]
  - Mental impairment [None]
  - Product formulation issue [None]
  - Headache [None]

NARRATIVE: CASE EVENT DATE: 20170817
